FAERS Safety Report 15005178 (Version 1)
Quarter: 2018Q2

REPORT INFORMATION
  Report Type: Spontaneous
  Country: US (occurrence: US)
  Receive Date: 20180525
  Receipt Date: 20180525
  Transmission Date: 20180711
  Serious: Yes (Other)
  Sender: FDA-Public Use
  Company Number: None

PATIENT
  Age: 56 Year
  Sex: Male
  Weight: 85.5 kg

DRUGS (9)
  1. ZYTIGA [Suspect]
     Active Substance: ABIRATERONE ACETATE
     Indication: PROSTATE CANCER
     Route: 048
     Dates: start: 20180124
  2. NAPROXEN. [Concomitant]
     Active Substance: NAPROXEN
  3. ONDANSETRON [Concomitant]
     Active Substance: ONDANSETRON
  4. XTANDI [Concomitant]
     Active Substance: ENZALUTAMIDE
  5. LORAZEPAM. [Concomitant]
     Active Substance: LORAZEPAM
  6. XGEVA [Concomitant]
     Active Substance: DENOSUMAB
  7. OXYCODONE [Concomitant]
     Active Substance: OXYCODONE
  8. PROCHLORPERAZINE. [Concomitant]
     Active Substance: PROCHLORPERAZINE
  9. CALCIUM + D [Concomitant]
     Active Substance: CALCIUM\VITAMIN D

REACTIONS (1)
  - Disease progression [None]
